FAERS Safety Report 6264821-5 (Version None)
Quarter: 2009Q3

REPORT INFORMATION
  Report Type: 
  Country: None (occurrence: None)
  Receive Date: 20090710
  Receipt Date: 20090703
  Transmission Date: 20100115
  Serious: Yes (Other)
  Sender: FDA-Public Use
  Company Number: DK-MERCK-0907DNK00002

PATIENT
  Sex: Female
  Weight: 56 kg

DRUGS (1)
  1. DECADRON [Suspect]
     Indication: ADRENAL CORTEX DYSPLASIA
     Route: 048
     Dates: start: 19940101, end: 19990101

REACTIONS (1)
  - PREMATURE BABY [None]
